FAERS Safety Report 17088361 (Version 4)
Quarter: 2020Q1

REPORT INFORMATION
  Report Type: Report from Study
  Country: DE (occurrence: DE)
  Receive Date: 20191128
  Receipt Date: 20200316
  Transmission Date: 20200409
  Serious: Yes (Hospitalization, Other)
  Sender: FDA-Public Use
  Company Number: DE-BRISTOL-MYERS SQUIBB COMPANY-BMS-2019-078082

PATIENT
  Age: 50 Year
  Sex: Female

DRUGS (1)
  1. ABATACEPT [Suspect]
     Active Substance: ABATACEPT
     Indication: PSORIATIC ARTHROPATHY
     Dosage: 125 MILLIGRAM, QMO
     Route: 058
     Dates: start: 20190226

REACTIONS (7)
  - Alopecia [Not Recovered/Not Resolved]
  - Panic attack [Recovered/Resolved]
  - Drug ineffective [Not Recovered/Not Resolved]
  - Gallbladder disorder [Recovered/Resolved]
  - Cystitis noninfective [Recovered/Resolved]
  - Off label use [Recovered/Resolved]
  - Umbilical hernia [Recovered/Resolved]

NARRATIVE: CASE EVENT DATE: 20190226
